FAERS Safety Report 6727821-4 (Version None)
Quarter: 2010Q2

REPORT INFORMATION
  Report Type: 
  Country: None (occurrence: None)
  Receive Date: 20100514
  Receipt Date: 20100514
  Transmission Date: 20101027
  Serious: Yes (Other)
  Sender: FDA-Public Use
  Company Number: None

PATIENT
  Age: 48 Year
  Sex: Female
  Weight: 47.6277 kg

DRUGS (2)
  1. ADVAIR DISKUS 250/50 [Suspect]
     Indication: CHRONIC OBSTRUCTIVE PULMONARY DISEASE
     Dosage: 2 TIMES DAILY
     Dates: start: 20090101, end: 20100301
  2. ADVAIR DISKUS 250/50 [Suspect]
     Indication: LUNG LOBECTOMY
     Dosage: 2 TIMES DAILY
     Dates: start: 20090101, end: 20100301

REACTIONS (2)
  - EATING DISORDER [None]
  - ORAL CANDIDIASIS [None]
